FAERS Safety Report 6738411-1 (Version None)
Quarter: 2010Q2

REPORT INFORMATION
  Report Type: 
  Country: None (occurrence: None)
  Receive Date: 20100520
  Receipt Date: 20100505
  Transmission Date: 20101027
  Serious: Yes (Hospitalization)
  Sender: FDA-Public Use
  Company Number: 10AE002

PATIENT
  Age: 56 Year
  Sex: Male

DRUGS (4)
  1. PSEUDOEPHEDRINE HCL [Suspect]
     Indication: MULTIPLE ALLERGIES
     Dosage: 2 TABLETS EVERY 4-6 HRS
     Dates: start: 20081224, end: 20081227
  2. PSEUDOEPHEDRINE HCL [Suspect]
     Indication: NASAL CONGESTION
     Dosage: 2 TABLETS EVERY 4-6 HRS
     Dates: start: 20081224, end: 20081227
  3. VITAMIN B,C E COMPLEX [Concomitant]
  4. ALEVE [Concomitant]

REACTIONS (1)
  - HYPOAESTHESIA [None]
